FAERS Safety Report 8271367 (Version 2)
Quarter: 2012Q4

REPORT INFORMATION
  Report Type: 
  Country: US (occurrence: US)
  Receive Date: 20111201
  Receipt Date: 20121012
  Transmission Date: 20130627
  Serious: Yes (Other)
  Sender: FDA-Public Use
  Company Number: US-ASTRAZENECA-2011SE71216

PATIENT
  Age: 63 Year
  Sex: Female

DRUGS (3)
  1. NEXIUM [Suspect]
     Route: 048
  2. CRESTOR [Suspect]
     Route: 048
  3. SINGULAIR [Concomitant]

REACTIONS (7)
  - Cataract [Unknown]
  - Neck injury [Unknown]
  - Road traffic accident [Unknown]
  - Inner ear disorder [Unknown]
  - Dry mouth [Unknown]
  - Polydipsia [Unknown]
  - Vertigo [Unknown]
